FAERS Safety Report 21320097 (Version 2)
Quarter: 2022Q3

REPORT INFORMATION
  Report Type: Report from Study
  Country: US (occurrence: US)
  Receive Date: 20220911
  Receipt Date: 20220923
  Transmission Date: 20221027
  Serious: No
  Sender: FDA-Public Use
  Company Number: US-SA-SAC20220905001626

PATIENT
  Age: 53 Year
  Sex: Female

DRUGS (9)
  1. TERIFLUNOMIDE [Suspect]
     Active Substance: TERIFLUNOMIDE
     Indication: Multiple sclerosis
     Dosage: 14 MG, QD
     Route: 048
     Dates: start: 20220829
  2. VENLAFAXINE [Concomitant]
     Active Substance: VENLAFAXINE HYDROCHLORIDE
  3. BIOTIN [Concomitant]
     Active Substance: BIOTIN
  4. CYANOCOBALAMIN [Concomitant]
     Active Substance: CYANOCOBALAMIN
  5. ENTYVIO [Concomitant]
     Active Substance: VEDOLIZUMAB
  6. ASPIRIN [Concomitant]
     Active Substance: ASPIRIN
  7. CALCIUM [Concomitant]
     Active Substance: CALCIUM
  8. FUROSEMIDE [Concomitant]
     Active Substance: FUROSEMIDE
  9. XANAX [Concomitant]
     Active Substance: ALPRAZOLAM

REACTIONS (4)
  - Fatigue [Not Recovered/Not Resolved]
  - Sinus disorder [Not Recovered/Not Resolved]
  - Dizziness [Not Recovered/Not Resolved]
  - Throat clearing [Not Recovered/Not Resolved]

NARRATIVE: CASE EVENT DATE: 20220101
